FAERS Safety Report 7804313-2 (Version None)
Quarter: 2011Q4

REPORT INFORMATION
  Report Type: 
  Country: None (occurrence: None)
  Receive Date: 20111010
  Receipt Date: 20111005
  Transmission Date: 20120403
  Serious: Yes (Hospitalization)
  Sender: FDA-Public Use
  Company Number: DE-BRISTOL-MYERS SQUIBB COMPANY-15974595

PATIENT
  Age: 44 Year
  Sex: Female

DRUGS (4)
  1. TOCILIZUMAB [Suspect]
     Dosage: CUMULATIVE DOSE 1920MG
     Dates: start: 20090801, end: 20100101
  2. ABATACEPT [Suspect]
     Indication: RHEUMATOID ARTHRITIS
     Dosage: RECD ON T0:30NV06,T1:23FB07,T2:30MY,T3:12DC07,T4:16AG08,T5:9DC08,T6:4JUN09,T8:5NV10,CUM DOSE:3500MG
     Dates: start: 20100401
  3. ETANERCEPT [Suspect]
     Dosage: CUMULATIVE DOSE:200MG
     Dates: start: 20090601, end: 20090801
  4. METHOTREXATE SODIUM [Concomitant]

REACTIONS (1)
  - BILIARY COLIC [None]
